FAERS Safety Report 22175701 (Version 3)
Quarter: 2023Q4

REPORT INFORMATION
  Report Type: Report from Study
  Country: US (occurrence: US)
  Receive Date: 20230405
  Receipt Date: 20231025
  Transmission Date: 20240109
  Serious: No
  Sender: FDA-Public Use
  Company Number: US-IDORSIA-004298-2023-US

PATIENT
  Sex: Male

DRUGS (1)
  1. QUVIVIQ [Suspect]
     Active Substance: DARIDOREXANT
     Indication: Insomnia
     Dosage: 50 MG, QD
     Route: 048

REACTIONS (6)
  - Dry mouth [Recovered/Resolved]
  - Sleep talking [Recovered/Resolved]
  - Abnormal dreams [Recovered/Resolved]
  - Therapeutic product effect incomplete [Recovered/Resolved]
  - Insomnia [Unknown]
  - Product availability issue [Unknown]
